FAERS Safety Report 8196329-4 (Version None)
Quarter: 2012Q1

REPORT INFORMATION
  Report Type: 
  Country: None (occurrence: None)
  Receive Date: 20120309
  Receipt Date: 20120305
  Transmission Date: 20120608
  Serious: No
  Sender: FDA-Public Use
  Company Number: US-PFIZER INC-2012059208

PATIENT
  Sex: Female
  Weight: 120 kg

DRUGS (6)
  1. AMBIEN [Concomitant]
     Indication: INSOMNIA
     Dosage: 10 MG, DAILY
     Dates: end: 20111101
  2. VISTARIL [Concomitant]
     Indication: ANXIETY
     Dosage: 50 MG, AS NEEDED
     Dates: end: 20111101
  3. PROTONIX [Suspect]
     Indication: GASTROOESOPHAGEAL REFLUX DISEASE
     Dosage: 40 MG, DAILY
     Dates: start: 20100101
  4. RESTORIL [Concomitant]
     Indication: INSOMNIA
     Dosage: 30 MG, DAILY
     Dates: end: 20111101
  5. VISTARIL [Concomitant]
     Indication: ANGER
  6. VISTARIL [Concomitant]
     Indication: PANIC ATTACK

REACTIONS (1)
  - DRUG SCREEN FALSE POSITIVE [None]
